FAERS Safety Report 8157829-6 (Version None)
Quarter: 2012Q1

REPORT INFORMATION
  Report Type: 
  Country: None (occurrence: None)
  Receive Date: 20120222
  Receipt Date: 20120215
  Transmission Date: 20120608
  Serious: Yes (Other)
  Sender: FDA-Public Use
  Company Number: FR-PFIZER INC-2011055284

PATIENT
  Age: 53 Year
  Sex: Female
  Weight: 58 kg

DRUGS (3)
  1. SULFASALAZINE [Suspect]
     Indication: ANKYLOSING SPONDYLITIS
     Dosage: 3 DF, 2X/DAY
  2. VOLTAREN [Suspect]
     Indication: ANKYLOSING SPONDYLITIS
     Dosage: 1 DF, 1X/DAY
  3. SULFASALAZINE [Suspect]
     Dosage: 1 DF IN THE MORNING, 1 DF AT LUNCHTIME, 4 DF IN THE EVENING
     Dates: end: 20120210

REACTIONS (11)
  - GAMMA-GLUTAMYLTRANSFERASE INCREASED [None]
  - TUBERCULOSIS [None]
  - OCULAR HYPERAEMIA [None]
  - DISTURBANCE IN ATTENTION [None]
  - EYE IRRITATION [None]
  - VERTIGO [None]
  - SKIN DISORDER [None]
  - TRANSAMINASES INCREASED [None]
  - SEDATION [None]
  - PHOTOPHOBIA [None]
  - GASTRIC DISORDER [None]
